FAERS Safety Report 23512287 (Version 2)
Quarter: 2024Q1

REPORT INFORMATION
  Report Type: Spontaneous
  Country: US (occurrence: US)
  Receive Date: 20240212
  Receipt Date: 20240304
  Transmission Date: 20240409
  Serious: Yes (Hospitalization)
  Sender: FDA-Public Use
  Company Number: US-TEVA-VS-3136363

PATIENT
  Age: 36 Year
  Sex: Female

DRUGS (2)
  1. AMOXICILLIN [Suspect]
     Active Substance: AMOXICILLIN
     Indication: Pyrexia
     Route: 065
  2. METHIMAZOLE [Suspect]
     Active Substance: METHIMAZOLE
     Indication: Graves^ disease
     Dosage: INITIALLY THREE TIMES A DAY; LATER, REDUCED TO TWO TIMES A DAY
     Route: 065

REACTIONS (8)
  - Drug ineffective [Unknown]
  - Peritonsillar abscess [Recovering/Resolving]
  - Tonsillitis [Recovering/Resolving]
  - Oral candidiasis [Recovering/Resolving]
  - Herpes simplex [Recovering/Resolving]
  - Agranulocytosis [Recovering/Resolving]
  - Epiglottitis [Recovering/Resolving]
  - Peritonsillar abscess [Recovering/Resolving]
